FAERS Safety Report 10556101 (Version 2)
Quarter: 2014Q4

REPORT INFORMATION
  Report Type: Spontaneous
  Country: ES (occurrence: ES)
  Receive Date: 20141031
  Receipt Date: 20141031
  Transmission Date: 20150529
  Serious: Yes (Hospitalization)
  Sender: FDA-Public Use
  Company Number: ES-AMGEN-ESPSP2014080628

PATIENT
  Age: 41 Year
  Sex: Female
  Weight: 69 kg

DRUGS (5)
  1. ARCOXIA [Concomitant]
     Active Substance: ETORICOXIB
     Indication: PAIN
     Dosage: UNK UNK, QD
  2. OMEPRAZOL                          /00661201/ [Concomitant]
     Active Substance: OMEPRAZOLE
     Indication: GASTRIC DISORDER
     Dosage: UNK
  3. STILNOX [Concomitant]
     Active Substance: ZOLPIDEM TARTRATE
     Indication: INSOMNIA
     Dosage: 0.5 DF, DAILY (HALF TABLET, DAILY)
  4. ENBREL [Suspect]
     Active Substance: ETANERCEPT
     Indication: PRODUCT USED FOR UNKNOWN INDICATION
     Dosage: 50 MG, WEEKLY, ON TUESDAYS
     Route: 058
     Dates: start: 20140930, end: 20141007
  5. TETANUS VACCINE [Concomitant]
     Active Substance: CLOSTRIDIUM TETANI TOXOID ANTIGEN (FORMALDEHYDE INACTIVATED)
     Dosage: UNK

REACTIONS (10)
  - Vision blurred [Recovered/Resolved]
  - Cold sweat [Recovered/Resolved]
  - Tremor [Recovered/Resolved]
  - Anxiety [Recovered/Resolved]
  - Vulvovaginal discomfort [Recovered/Resolved]
  - Fatigue [Recovered/Resolved]
  - Hypoaesthesia [Recovered/Resolved]
  - Fear of injection [Recovered/Resolved]
  - Vomiting [Recovered/Resolved]
  - Hyperhidrosis [Recovered/Resolved]

NARRATIVE: CASE EVENT DATE: 20141007
